FAERS Safety Report 18546291 (Version 4)
Quarter: 2020Q4

REPORT INFORMATION
  Report Type: Spontaneous
  Country: US (occurrence: US)
  Receive Date: 20201125
  Receipt Date: 20201216
  Transmission Date: 20210114
  Serious: Yes (Life-Threatening)
  Sender: FDA-Public Use
  Company Number: US-PFIZER INC-2020463808

PATIENT
  Age: 61 Year
  Sex: Female
  Weight: 108.86 kg

DRUGS (2)
  1. DESVENLAFAXINE SUCCINATE MONOHYDRATE [Suspect]
     Active Substance: DESVENLAFAXINE SUCCINATE
     Indication: MAJOR DEPRESSION
     Dosage: 50 MG, 1X/DAY
     Route: 048
     Dates: start: 2014, end: 2017
  2. DESVENLAFAXINE SUCCINATE MONOHYDRATE [Suspect]
     Active Substance: DESVENLAFAXINE SUCCINATE
     Dosage: 50 MG, 1X/DAY
     Route: 048
     Dates: start: 2017, end: 2017

REACTIONS (5)
  - Drug ineffective [Unknown]
  - Negative thoughts [Recovered/Resolved]
  - Abnormal dreams [Recovered/Resolved]
  - Suicidal ideation [Unknown]
  - Sleep paralysis [Recovered/Resolved]
